FAERS Safety Report 23707388 (Version 1)
Quarter: 2024Q2

REPORT INFORMATION
  Report Type: Spontaneous
  Country: US (occurrence: US)
  Receive Date: 20240404
  Receipt Date: 20240404
  Transmission Date: 20240715
  Serious: Yes (Other)
  Sender: FDA-Public Use
  Company Number: US-CIPLA LTD.-2024US03133

PATIENT

DRUGS (16)
  1. TOPIRAMATE [Suspect]
     Active Substance: TOPIRAMATE
     Indication: Pain
     Dosage: 100 MILLIGRAM, BID (1 TABLET TWO TIMES A DAY 12 HOURS APART)
     Route: 048
     Dates: start: 20240215, end: 20240302
  2. ADDERALL [Concomitant]
     Active Substance: AMPHETAMINE ASPARTATE\AMPHETAMINE SULFATE\DEXTROAMPHETAMINE SACCHARATE\DEXTROAMPHETAMINE SULFATE
     Indication: Attention deficit hyperactivity disorder
     Dosage: 20 MILLIGRAM, TID (1 TABLET 3 TIMES A DAY)
     Route: 065
  3. ATIVAN [Concomitant]
     Active Substance: LORAZEPAM
     Indication: Anxiety
     Dosage: 2 MILLIGRAM, TID (2 MG/1 TABLET/3 TIMES A DAY)
     Route: 065
  4. DESOXIMETASONE [Concomitant]
     Active Substance: DESOXIMETASONE
     Indication: Dermatitis contact
     Dosage: UNK, QD (AT NIGHT)
     Route: 065
     Dates: start: 202401
  5. DICLOFENAC SODIUM [Concomitant]
     Active Substance: DICLOFENAC\DICLOFENAC SODIUM
     Indication: Arthritis
     Dosage: 75 MILLIGRAM, BID (75 MG/1 TABLET 2 TIMES A DAY)
     Route: 065
  6. FLUCONAZOLE [Concomitant]
     Active Substance: FLUCONAZOLE
     Indication: Prophylaxis
     Dosage: UNK, PRN (1 TABLET IN 1ST WEEK AND 2ND DOSE IN THE NEXT WEEK AS NEEDED)
     Route: 065
  7. LEVOTHYROXINE SODIUM [Concomitant]
     Active Substance: LEVOTHYROXINE SODIUM
     Indication: Thyroid disorder
     Dosage: 50 MCG, QD (50MCG/1 TABLET ONCE A DAY)
     Route: 065
     Dates: start: 2022
  8. MS CONTIN [Concomitant]
     Active Substance: MORPHINE SULFATE
     Indication: Calcineurin inhibitor induced pain syndrome
     Dosage: 20 MILLIGRAM, BID (20MG/1 TABLET TWICE A DAY)
     Route: 065
     Dates: end: 202402
  9. MS CONTIN [Concomitant]
     Active Substance: MORPHINE SULFATE
     Dosage: 30 MILLIGRAM, BID (30MG/1 TABLET TWICE A DAY)
     Route: 065
     Dates: start: 202402
  10. MUPIROCIN [Concomitant]
     Active Substance: MUPIROCIN
     Indication: Dermatitis contact
     Dosage: UNK, BID (2%/2 TIMES A DAY)
     Route: 065
     Dates: start: 202401
  11. PRAZOSIN HYDROCHLORIDE [Concomitant]
     Active Substance: PRAZOSIN HYDROCHLORIDE
     Indication: Post-traumatic stress disorder
     Dosage: 1 MILLIGRAM, QD (1MG/1 TABLET ONCE A DAY)
     Route: 065
     Dates: start: 2019
  12. TRINTELLIX [Concomitant]
     Active Substance: VORTIOXETINE HYDROBROMIDE
     Indication: Depression
     Dosage: 20 MILLIGRAM, QD (20MG/1 TABLET ONCE A DAY)
     Route: 065
  13. WELLBUTRIN XL [Concomitant]
     Active Substance: BUPROPION HYDROCHLORIDE
     Indication: Depression
     Dosage: 300 MILLIGRAM, QD (300MG/1 TABLET ONCE A DAY)
     Route: 065
  14. VALACYCLOVIR [Concomitant]
     Active Substance: VALACYCLOVIR HYDROCHLORIDE
     Indication: Prophylaxis
     Dosage: 500 MILLIGRAM, QD (500MG/1 TABLET ONCE A DAY)
     Route: 065
     Dates: start: 2014
  15. BIOTIN [Concomitant]
     Active Substance: BIOTIN
     Indication: Hair disorder
     Dosage: 5000 MCG, QD (5000MCG/ONCE A DAY)
     Route: 065
     Dates: start: 2022
  16. BIOTIN [Concomitant]
     Active Substance: BIOTIN
     Indication: Nail disorder

REACTIONS (14)
  - Hallucination, visual [Recovered/Resolved]
  - Hallucination, auditory [Recovered/Resolved]
  - Dermatitis contact [Recovered/Resolved]
  - Dehydration [Unknown]
  - Taste disorder [Recovered/Resolved]
  - Off label use [Unknown]
  - Decreased appetite [Recovered/Resolved]
  - Nausea [Recovered/Resolved]
  - Diarrhoea [Recovered/Resolved]
  - Visual impairment [Recovered/Resolved]
  - Fatigue [Recovered/Resolved]
  - Dizziness [Recovered/Resolved]
  - Speech disorder [Recovered/Resolved]
  - Somnolence [Recovered/Resolved]

NARRATIVE: CASE EVENT DATE: 20240101
